FAERS Safety Report 7907531-8 (Version None)
Quarter: 2011Q4

REPORT INFORMATION
  Report Type: 
  Country: None (occurrence: None)
  Receive Date: 20111109
  Receipt Date: 20111031
  Transmission Date: 20120403
  Serious: Yes (Hospitalization)
  Sender: FDA-Public Use
  Company Number: 2011MA015907

PATIENT
  Age: 61 Year
  Sex: Male

DRUGS (8)
  1. ACYCLOVIR [Suspect]
     Indication: HERPES ZOSTER
     Dosage: 200 MG;BID;PO
     Route: 048
  2. LEDERFOLIN [Concomitant]
  3. COUMADIN [Concomitant]
  4. CALCIUM CARBONATE [Concomitant]
  5. VALIUM [Concomitant]
  6. ALTIAZEM [Concomitant]
  7. ZANTAC [Concomitant]
  8. CORDARONE [Concomitant]

REACTIONS (8)
  - BRADYPHRENIA [None]
  - BRADYKINESIA [None]
  - BLOOD UREA INCREASED [None]
  - OVERDOSE [None]
  - CONFUSIONAL STATE [None]
  - BLOOD CREATINE INCREASED [None]
  - INTERNATIONAL NORMALISED RATIO DECREASED [None]
  - ATAXIA [None]
